FAERS Safety Report 6416691-X (Version None)
Quarter: 2009Q4

REPORT INFORMATION
  Report Type: 
  Country: None (occurrence: None)
  Receive Date: 20091027
  Receipt Date: 20091022
  Transmission Date: 20100525
  Serious: Yes (Life-Threatening)
  Sender: FDA-Public Use
  Company Number: JP-ASTRAZENECA-2009SE22274

PATIENT
  Age: 68 Year
  Sex: Male

DRUGS (3)
  1. MEROPEN [Suspect]
     Indication: PERITONITIS
     Route: 042
  2. VANCOMYCIN [Concomitant]
  3. CEFAMEZIN [Concomitant]

REACTIONS (1)
  - PANCYTOPENIA [None]
